FAERS Safety Report 11127603 (Version 1)
Quarter: 2015Q2

REPORT INFORMATION
  Report Type: Spontaneous
  Country: CA (occurrence: CA)
  Receive Date: 20150521
  Receipt Date: 20150521
  Transmission Date: 20150821
  Serious: Yes (Other)
  Sender: FDA-Public Use
  Company Number: CA-TEVA-563786ACC

PATIENT
  Age: 67 Year
  Sex: Female
  Weight: 43 kg

DRUGS (23)
  1. CEFTRIAXONE FOR INJECTION USP [Concomitant]
     Dosage: POWDER FOR SOLUTION, UNKNOWN FORM STRENGTH
     Route: 030
  2. SENNOSIDES. [Concomitant]
     Active Substance: SENNOSIDES
     Dosage: UNKNOWN FORM STRENGTH
     Route: 065
  3. PENICILLIN G [Suspect]
     Active Substance: PENICILLIN G
     Indication: ENDOCARDITIS ENTEROCOCCAL
     Dosage: 12 DOSAGE FORMS DAILY;
     Route: 042
  4. FRAGMIN [Concomitant]
     Active Substance: DALTEPARIN SODIUM
     Dosage: SOLUTION, UNKNOWN FORM STRENGTH
     Route: 042
  5. METOPROLOL [Concomitant]
     Active Substance: METOPROLOL
     Dosage: UNKNOWN FORM STRENGTH
     Route: 065
  6. PANTOPRAZOLE [Concomitant]
     Active Substance: PANTOPRAZOLE SODIUM
     Dosage: UNKNOWN FORM STRENGTH
     Route: 065
  7. RAMIPRIL. [Concomitant]
     Active Substance: RAMIPRIL
     Dosage: UNKNOWN FORM STRENGTH
     Route: 065
  8. VANCOMYCIN [Concomitant]
     Active Substance: VANCOMYCIN
     Dosage: UNKNOWN FORM STRENGTH
     Route: 065
  9. WARFARIN [Concomitant]
     Active Substance: WARFARIN
     Dosage: UNKNOWN FORM STRENGTH
     Route: 065
  10. FERROUS SULFATE [Concomitant]
     Active Substance: FERROUS SULFATE\FERROUS SULFATE, DRIED
     Dosage: UNKNOWN FORM STRENGTH
     Route: 065
  11. PENICILLIN G [Suspect]
     Active Substance: PENICILLIN G
     Indication: ENDOCARDITIS ENTEROCOCCAL
     Dosage: 18 DOSAGE FORMS DAILY;
     Route: 042
  12. DIMENHYDRINATE. [Concomitant]
     Active Substance: DIMENHYDRINATE
     Dosage: UNKNOWN FORM STRENGTH
     Route: 065
  13. AMIODARONE [Concomitant]
     Active Substance: AMIODARONE
     Dosage: UNKNOWN FORM STRENGTH
     Route: 065
  14. OXAZEPAM. [Concomitant]
     Active Substance: OXAZEPAM
     Dosage: UNKNOWN FORM STRENGTH
     Route: 065
  15. DAPTOMYCIN. [Concomitant]
     Active Substance: DAPTOMYCIN
     Dosage: UNKNOWN FORM STRENGTH
     Route: 065
  16. PIPERACILLIN/TAZOBACT AM [Suspect]
     Active Substance: PIPERACILLIN SODIUM\TAZOBACTAM SODIUM
     Dosage: 12 GRAM DAILY;
     Route: 042
  17. FUROSEMIDE. [Concomitant]
     Active Substance: FUROSEMIDE
     Dosage: UNKNOWN FORM STRENGTH
     Route: 065
  18. K-DUR [Concomitant]
     Active Substance: POTASSIUM CHLORIDE
     Dosage: TABLET(EXTENDED-RELEASE), UNKNOWN FORM STRENGTH
     Route: 065
  19. PENICILLIN G [Suspect]
     Active Substance: PENICILLIN G
     Indication: ENDOCARDITIS ENTEROCOCCAL
     Dosage: 18 MU DAILY;
     Route: 042
  20. ACETAMINOPHEN. [Concomitant]
     Active Substance: ACETAMINOPHEN
     Dosage: UNKNOWN FORM STRENGTH
     Route: 065
  21. ASA [Concomitant]
     Active Substance: ASPIRIN
     Dosage: UNKNOWN FORM STRENGTH
     Route: 065
  22. DOCUSATE SODIUM. [Concomitant]
     Active Substance: DOCUSATE SODIUM
     Dosage: UNKNOWN FORM STRENGTH
     Route: 065
  23. NOREPINEPHRINE [Concomitant]
     Active Substance: NOREPINEPHRINE\NOREPINEPHRINE BITARTRATE
     Dosage: UNKNOWN FORM STRENGTH
     Route: 065

REACTIONS (4)
  - Hypersensitivity vasculitis [Recovered/Resolved]
  - Palpable purpura [Recovered/Resolved]
  - Petechiae [Recovered/Resolved]
  - Rash maculo-papular [Recovered/Resolved]
